FAERS Safety Report 21736056 (Version 2)
Quarter: 2025Q1

REPORT INFORMATION
  Report Type: Spontaneous
  Country: US (occurrence: US)
  Receive Date: 20221215
  Receipt Date: 20250206
  Transmission Date: 20250409
  Serious: Yes (Other)
  Sender: NOVO NORDISK
  Company Number: US-NOVOPROD-933000

PATIENT
  Sex: Female

DRUGS (2)
  1. LEVEMIR [Suspect]
     Active Substance: INSULIN DETEMIR
     Indication: Latent autoimmune diabetes in adults
     Dosage: 35 IU, QD
     Route: 058
     Dates: start: 202205
  2. HUMALOG [Concomitant]
     Active Substance: INSULIN LISPRO
     Indication: Latent autoimmune diabetes in adults
     Route: 058

REACTIONS (5)
  - Cardiac failure congestive [Unknown]
  - Coma [Unknown]
  - Gait disturbance [Unknown]
  - Discharge [Unknown]
  - Dizziness [Not Recovered/Not Resolved]
